FAERS Safety Report 7925712-4 (Version None)
Quarter: 2011Q4

REPORT INFORMATION
  Report Type: 
  Country: None (occurrence: None)
  Receive Date: 20111118
  Receipt Date: 20110411
  Transmission Date: 20120403
  Serious: No
  Sender: FDA-Public Use
  Company Number: US-AMGEN-USASP2011019124

PATIENT
  Age: 31 Year
  Sex: Female

DRUGS (2)
  1. PRENATAL VITAMINS                  /01549301/ [Concomitant]
     Dosage: UNK UNK, QD
  2. ENBREL [Suspect]
     Indication: RHEUMATOID ARTHRITIS
     Dosage: 50 MG, QWK
     Route: 058
     Dates: start: 20050101, end: 20101010

REACTIONS (2)
  - VOMITING IN PREGNANCY [None]
  - RHEUMATOID ARTHRITIS [None]
